FAERS Safety Report 12457008 (Version 1)
Quarter: 2016Q2

REPORT INFORMATION
  Report Type: Spontaneous
  Country: US (occurrence: US)
  Receive Date: 20160610
  Receipt Date: 20160610
  Transmission Date: 20160815
  Serious: Yes (Other)
  Sender: FDA-Public Use
  Company Number: US-WATSON-2016-11857

PATIENT
  Sex: Male

DRUGS (1)
  1. PROPOFOL (UNKNOWN) [Suspect]
     Active Substance: PROPOFOL
     Indication: ANAESTHESIA
     Dosage: UNK
     Route: 065

REACTIONS (4)
  - Headache [Unknown]
  - Consciousness fluctuating [Unknown]
  - Malaise [Unknown]
  - Somnolence [Unknown]
